FAERS Safety Report 20591025 (Version 1)
Quarter: 2022Q1

REPORT INFORMATION
  Report Type: Spontaneous
  Country: US (occurrence: None)
  Receive Date: 20220314
  Receipt Date: 20220314
  Transmission Date: 20220423
  Serious: Yes (Hospitalization)
  Sender: FDA-Public Use
  Company Number: None

PATIENT
  Age: 33 Year
  Sex: Female

DRUGS (4)
  1. TOBRAMYCIN [Suspect]
     Active Substance: TOBRAMYCIN
     Indication: Cystic fibrosis
     Dosage: OTHER QUANTITY : 300MG/5ML;?FREQUENCY : DAILY;??INHALE 5 MLS (300 MG TOTAL) VIA NEBULIZER 2 (TWO) TI
     Route: 055
  2. AQUADEKS CAPS [Concomitant]
  3. NAPROXEN TAB [Concomitant]
  4. PULMOZYME [Concomitant]
     Active Substance: DORNASE ALFA

REACTIONS (5)
  - Insurance issue [None]
  - Pneumonia [None]
  - Staphylococcal infection [None]
  - Therapy interrupted [None]
  - Infective pulmonary exacerbation of cystic fibrosis [None]

NARRATIVE: CASE EVENT DATE: 20220218
